FAERS Safety Report 19495694 (Version 1)
Quarter: 2021Q3

REPORT INFORMATION
  Report Type: Spontaneous
  Country: AU (occurrence: AU)
  Receive Date: 20210706
  Receipt Date: 20210706
  Transmission Date: 20211014
  Serious: Yes (Death, Hospitalization, Other)
  Sender: FDA-Public Use
  Company Number: AU-ASTELLAS-2021US024354

PATIENT
  Age: 72 Year
  Sex: Male

DRUGS (2)
  1. MYCOPHENOLATE [Concomitant]
     Active Substance: MYCOPHENOLIC ACID
     Indication: HEART TRANSPLANT
     Dosage: UNK UNK, UNKNOWN FREQ.
     Route: 065
     Dates: start: 201908
  2. TACROLIMUS. [Suspect]
     Active Substance: TACROLIMUS
     Indication: HEART TRANSPLANT
     Dosage: UNK UNK, UNKNOWN FREQ.
     Route: 065
     Dates: start: 201908

REACTIONS (11)
  - Multiple organ dysfunction syndrome [Fatal]
  - Malacoplakia gastrointestinal [Recovering/Resolving]
  - Colitis [Recovering/Resolving]
  - Escherichia bacteraemia [Recovering/Resolving]
  - Escherichia bacteraemia [Recovering/Resolving]
  - Neutropenic sepsis [Unknown]
  - Neutropenic sepsis [Unknown]
  - Bronchopulmonary aspergillosis [Unknown]
  - Pseudomonas infection [Unknown]
  - Septic shock [Fatal]
  - Enterococcal infection [Unknown]

NARRATIVE: CASE EVENT DATE: 2019
